FAERS Safety Report 10770690 (Version 1)
Quarter: 2015Q1

REPORT INFORMATION
  Report Type: Report from Study
  Country: PL (occurrence: PL)
  Receive Date: 20150206
  Receipt Date: 20150206
  Transmission Date: 20150721
  Serious: Yes (Hospitalization)
  Sender: FDA-Public Use
  Company Number: PHHO2011PL17819

PATIENT
  Age: 22 Year
  Sex: Male
  Weight: 60.8 kg

DRUGS (5)
  1. PLACEBO [Suspect]
     Active Substance: UNSPECIFIED INGREDIENT
     Indication: ASTROCYTOMA, LOW GRADE
     Route: 048
  2. DEPAKIN [Concomitant]
     Active Substance: VALPROATE SODIUM
     Indication: EPILEPSY
     Dosage: 500 MG, BID
     Route: 048
     Dates: start: 20091214
  3. RAD001 [Suspect]
     Active Substance: EVEROLIMUS
     Indication: ASTROCYTOMA, LOW GRADE
     Dosage: 8 MG, QD
     Route: 048
     Dates: start: 20110612, end: 20111010
  4. L-CARNITINE [Concomitant]
     Active Substance: CARNITINE
     Indication: EPILEPSY
     Dosage: 250 MG, UNK
     Route: 048
  5. RAD001 [Suspect]
     Active Substance: EVEROLIMUS
     Route: 048
     Dates: start: 20111111

REACTIONS (1)
  - Herpes zoster [Recovered/Resolved]

NARRATIVE: CASE EVENT DATE: 20111019
